FAERS Safety Report 25793114 (Version 1)
Quarter: 2025Q3

REPORT INFORMATION
  Report Type: Spontaneous
  Country: EU (occurrence: EU)
  Receive Date: 20250911
  Receipt Date: 20250911
  Transmission Date: 20251021
  Serious: Yes (Death, Life-Threatening, Hospitalization, Other)
  Sender: MERCK SHARP & DOHME LLC
  Company Number: None

PATIENT
  Age: 66 Year
  Sex: Male
  Weight: 70 kg

DRUGS (2)
  1. KEYTRUDA [Suspect]
     Active Substance: PEMBROLIZUMAB
     Indication: Renal cancer metastatic
     Route: 042
     Dates: start: 20250205
  2. LENVATINIB [Suspect]
     Active Substance: LENVATINIB
     Indication: Renal cancer metastatic
     Route: 048
     Dates: start: 20250115

REACTIONS (7)
  - Cerebral infarction [Fatal]
  - Hepatic cytolysis [Not Recovered/Not Resolved]
  - Endocarditis noninfective [Fatal]
  - Renal infarct [Fatal]
  - Myocardial infarction [Fatal]
  - Hyperlipasaemia [Recovered/Resolved]
  - Interstitial lung disease [Not Recovered/Not Resolved]

NARRATIVE: CASE EVENT DATE: 20250317
